FAERS Safety Report 6991467-3 (Version None)
Quarter: 2010Q3

REPORT INFORMATION
  Report Type: 
  Country: None (occurrence: None)
  Receive Date: 20100916
  Receipt Date: 20090825
  Transmission Date: 20110219
  Serious: No
  Sender: FDA-Public Use
  Company Number: US-WYE-H10721209

PATIENT
  Age: 50 Year
  Sex: Male
  Weight: 81.72 kg

DRUGS (1)
  1. PRISTIQ [Suspect]
     Indication: MAJOR DEPRESSION
     Route: 048
     Dates: start: 20090808, end: 20090825

REACTIONS (3)
  - GENITAL DISCOMFORT [None]
  - GENITAL PAIN [None]
  - OEDEMA GENITAL [None]
